FAERS Safety Report 9935670 (Version 1)
Quarter: 2014Q1

REPORT INFORMATION
  Report Type: Spontaneous
  Country: US (occurrence: US)
  Receive Date: 20140228
  Receipt Date: 20140228
  Transmission Date: 20141002
  Serious: Yes (Hospitalization)
  Sender: FDA-Public Use
  Company Number: US-AMGEN-USASP2013082444

PATIENT
  Age: 72 Year
  Sex: Male

DRUGS (5)
  1. ENBREL [Suspect]
     Indication: RHEUMATOID ARTHRITIS
     Dosage: 50 MG, QWK
     Route: 058
     Dates: start: 201310
  2. ALLOPURINOL [Concomitant]
     Dosage: UNK
  3. ATENOLOL [Concomitant]
     Dosage: UNK
  4. PLAQUENIL                          /00072602/ [Concomitant]
     Dosage: UNK
  5. TRICOR                             /00090101/ [Concomitant]
     Dosage: UNK

REACTIONS (1)
  - Pneumonia [Unknown]
